FAERS Safety Report 6742784-3 (Version None)
Quarter: 2010Q2

REPORT INFORMATION
  Report Type: 
  Country: None (occurrence: None)
  Receive Date: 20100525
  Receipt Date: 20100510
  Transmission Date: 20101027
  Serious: Yes (Other)
  Sender: FDA-Public Use
  Company Number: JPI-P-010688

PATIENT
  Age: 55 Year
  Sex: Female
  Weight: 58.9676 kg

DRUGS (6)
  1. XYREM [Suspect]
     Indication: NARCOLEPSY
     Dosage: ORAL, 9 GM (4.5 GM, 2 IN 1 D), ORAL
     Route: 048
     Dates: start: 20091101
  2. EZETIMIBE [Concomitant]
  3. INDAPAMIDE [Concomitant]
  4. VITAMIN D [Concomitant]
  5. RISEDRONATE SODIUM [Concomitant]
  6. ESTRADIOL [Concomitant]

REACTIONS (2)
  - BLOOD POTASSIUM DECREASED [None]
  - MEMORY IMPAIRMENT [None]
